FAERS Safety Report 10223244 (Version 1)
Quarter: 2014Q2

REPORT INFORMATION
  Report Type: Spontaneous
  Country: US (occurrence: US)
  Receive Date: 20140609
  Receipt Date: 20140609
  Transmission Date: 20141212
  Serious: Yes (Hospitalization, Other)
  Sender: FDA-Public Use
  Company Number: US-AMGEN INC.-USASP2014041669

PATIENT
  Age: 77 Year
  Sex: Male
  Weight: 79.37 kg

DRUGS (6)
  1. PROCRIT [Suspect]
     Indication: FULL BLOOD COUNT DECREASED
     Dosage: UNK UNK, QWK
     Route: 065
  2. NEUPOGEN [Suspect]
     Indication: FULL BLOOD COUNT DECREASED
     Dosage: UNK UNK, QWK
     Route: 065
  3. REVLIMID [Suspect]
     Indication: 5Q MINUS SYNDROME
     Dosage: 10 MG, 1 IN 1 D
     Route: 048
     Dates: start: 20140327, end: 20140423
  4. REVLIMID [Suspect]
     Dosage: 10 MG, 1 IN 1 D
     Route: 048
     Dates: start: 20140509, end: 20140514
  5. REVLIMID [Suspect]
     Dosage: 5 MG, QD
     Dates: start: 20140514
  6. VIDAZA [Suspect]
     Indication: 5Q MINUS SYNDROME
     Dosage: UNK
     Route: 065
     Dates: end: 201403

REACTIONS (6)
  - Joint effusion [Recovering/Resolving]
  - Neutropenia [Not Recovered/Not Resolved]
  - Anaemia [Not Recovered/Not Resolved]
  - Platelet count decreased [Not Recovered/Not Resolved]
  - Diarrhoea [Not Recovered/Not Resolved]
  - Fatigue [Not Recovered/Not Resolved]
